FAERS Safety Report 12424614 (Version 1)
Quarter: 2016Q2

REPORT INFORMATION
  Report Type: Spontaneous
  Country: US (occurrence: US)
  Receive Date: 20160601
  Receipt Date: 20160601
  Transmission Date: 20160815
  Serious: No
  Sender: FDA-Public Use
  Company Number: US-NOVEN PHARMACEUTICALS, INC.-US2015001098

PATIENT

DRUGS (7)
  1. DAYTRANA [Suspect]
     Active Substance: METHYLPHENIDATE
     Indication: ATTENTION DEFICIT/HYPERACTIVITY DISORDER
     Dosage: UNK, UNKNOWN
     Route: 062
     Dates: start: 2006
  2. DAYTRANA [Suspect]
     Active Substance: METHYLPHENIDATE
     Dosage: USING FOUR, 10 MG PATCHES, UNK
     Route: 062
  3. FOCALIN [Concomitant]
     Active Substance: DEXMETHYLPHENIDATE HYDROCHLORIDE
  4. DAYTRANA [Suspect]
     Active Substance: METHYLPHENIDATE
     Indication: AUTISM
     Dosage: USING TWO, 30 MG PATCHES, QD
     Route: 062
  5. DAYTRANA [Suspect]
     Active Substance: METHYLPHENIDATE
     Dosage: USING TWO, 20 MG PATCHES, UNK
     Route: 062
  6. STRATTERA [Concomitant]
     Active Substance: ATOMOXETINE HYDROCHLORIDE
     Indication: ATTENTION DEFICIT/HYPERACTIVITY DISORDER
  7. GABAPENTIN. [Concomitant]
     Active Substance: GABAPENTIN
     Indication: ANXIETY

REACTIONS (5)
  - Drug prescribing error [Unknown]
  - Off label use [Not Recovered/Not Resolved]
  - Wrong technique in product usage process [Unknown]
  - Prescribed overdose [Unknown]
  - No adverse event [Unknown]

NARRATIVE: CASE EVENT DATE: 2006
